FAERS Safety Report 25605502 (Version 1)
Quarter: 2025Q3

REPORT INFORMATION
  Report Type: Spontaneous
  Country: CH (occurrence: CH)
  Receive Date: 20250725
  Receipt Date: 20250725
  Transmission Date: 20251020
  Serious: Yes (Hospitalization)
  Sender: TEVA
  Company Number: None

PATIENT
  Age: 80 Year
  Sex: Male

DRUGS (7)
  1. FENTANYL [Interacting]
     Active Substance: FENTANYL
     Indication: Product used for unknown indication
     Route: 003
     Dates: start: 20250613, end: 20250615
  2. FENTANYL [Interacting]
     Active Substance: FENTANYL
     Indication: Product used for unknown indication
     Dosage: WITH BOLUS BY PCA, FENTANYL MEPHA
     Route: 065
     Dates: start: 20250611, end: 20250612
  3. FENTANYL [Interacting]
     Active Substance: FENTANYL
     Indication: Product used for unknown indication
     Dosage: WITH BOLUS
     Route: 065
     Dates: start: 20250612, end: 20250613
  4. QUETIAPINE [Interacting]
     Active Substance: QUETIAPINE
     Indication: Confusional state
     Route: 065
  5. QUETIAPINE [Interacting]
     Active Substance: QUETIAPINE
     Indication: Confusional state
     Route: 065
  6. PREGABALIN [Interacting]
     Active Substance: PREGABALIN
     Indication: Product used for unknown indication
     Route: 065
  7. BUPRENORPHINE HYDROCHLORIDE [Interacting]
     Active Substance: BUPRENORPHINE HYDROCHLORIDE
     Indication: Product used for unknown indication
     Route: 065
     Dates: start: 20250610, end: 20250610

REACTIONS (15)
  - Agitation [Recovered/Resolved]
  - Bradypnoea [Recovered/Resolved]
  - Drug interaction [Recovered/Resolved]
  - Altered state of consciousness [Recovered/Resolved]
  - Altered state of consciousness [Recovered/Resolved]
  - Cheyne-Stokes respiration [Recovered/Resolved]
  - Altered state of consciousness [Recovered/Resolved]
  - Confusional state [Recovered/Resolved]
  - Bradypnoea [Recovered/Resolved]
  - Agitation [Recovered/Resolved]
  - Irregular breathing [Recovered/Resolved]
  - Altered state of consciousness [Recovered/Resolved]
  - Miosis [Recovered/Resolved]
  - Irregular breathing [Recovered/Resolved]
  - Bradypnoea [Recovered/Resolved]

NARRATIVE: CASE EVENT DATE: 20250610
